FAERS Safety Report 11772807 (Version 1)
Quarter: 2015Q4

REPORT INFORMATION
  Report Type: Spontaneous
  Country: US (occurrence: None)
  Receive Date: 20151123
  Receipt Date: 20151123
  Transmission Date: 20160304
  Serious: Yes (Hospitalization)
  Sender: FDA-Public Use
  Company Number: None

PATIENT
  Age: 4 Year
  Sex: Female
  Weight: 20.05 kg

DRUGS (5)
  1. CYTARABINE. [Suspect]
     Active Substance: CYTARABINE
     Dates: end: 20151009
  2. VINCRISTINE SULFATE. [Suspect]
     Active Substance: VINCRISTINE SULFATE
     Dates: end: 20151023
  3. METHOTREXATE [Suspect]
     Active Substance: METHOTREXATE
     Dates: end: 20151016
  4. DEXAMETHASONE. [Suspect]
     Active Substance: DEXAMETHASONE
     Dates: end: 20151031
  5. ONCASPAR [Suspect]
     Active Substance: PEGASPARGASE
     Dosage: 1950 UNIT
     Dates: end: 20151013

REACTIONS (16)
  - Respiratory failure [None]
  - Streptococcal bacteraemia [None]
  - Haemodynamic instability [None]
  - Lactic acidosis [None]
  - Capillary leak syndrome [None]
  - Septic shock [None]
  - Ascites [None]
  - Compartment syndrome [None]
  - Seizure [None]
  - Thalamic infarction [None]
  - Bone abscess [None]
  - Colitis [None]
  - Arrhythmia [None]
  - Bradycardia [None]
  - Dyskinesia [None]
  - Acute kidney injury [None]

NARRATIVE: CASE EVENT DATE: 20151031
